FAERS Safety Report 16235933 (Version 1)
Quarter: 2019Q2

REPORT INFORMATION
  Report Type: Spontaneous
  Country: US (occurrence: US)
  Receive Date: 20190425
  Receipt Date: 20190425
  Transmission Date: 20190711
  Serious: Yes (Other)
  Sender: FDA-Public Use
  Company Number: US-TOLMAR, INC.-2019US003780

PATIENT

DRUGS (2)
  1. EFFEXOR [Concomitant]
     Active Substance: VENLAFAXINE HYDROCHLORIDE
  2. ELIGARD [Suspect]
     Active Substance: LEUPROLIDE ACETATE
     Indication: PROSTATE CANCER METASTATIC
     Dosage: UNK, UNK
     Route: 065
     Dates: start: 20180924

REACTIONS (5)
  - Sleep disorder [Recovered/Resolved]
  - Hot flush [Recovered/Resolved]
  - Mood swings [Recovered/Resolved]
  - Myalgia [Recovered/Resolved]
  - Injection site pain [Recovered/Resolved]
